FAERS Safety Report 9315452 (Version 1)
Quarter: 2013Q2

REPORT INFORMATION
  Report Type: Report from Study
  Country: CN (occurrence: CN)
  Receive Date: 20130529
  Receipt Date: 20130529
  Transmission Date: 20140414
  Serious: Yes (Hospitalization)
  Sender: FDA-Public Use
  Company Number: CN-BAXTER-2013BAX018986

PATIENT
  Age: 67 Year
  Sex: Male
  Weight: 64 kg

DRUGS (2)
  1. PERITONEAL DIALYSIS SOLUTION (LACTATE- G 1.5%) [Suspect]
     Indication: PERITONEAL DIALYSIS
     Route: 033
  2. PLENDIL [Concomitant]
     Indication: HYPERTENSION
     Route: 048

REACTIONS (1)
  - Ultrafiltration failure [Recovered/Resolved]
